FAERS Safety Report 17798650 (Version 1)
Quarter: 2020Q2

REPORT INFORMATION
  Report Type: Spontaneous
  Country: MY (occurrence: MY)
  Receive Date: 20200518
  Receipt Date: 20200518
  Transmission Date: 20200714
  Serious: Yes (Other)
  Sender: FDA-Public Use
  Company Number: NVSC2020MY133557

PATIENT
  Age: 10 Year
  Sex: Male

DRUGS (1)
  1. TEGRETOL [Suspect]
     Active Substance: CARBAMAZEPINE
     Indication: EPILEPSY
     Dosage: 200 MG, Q8H
     Route: 048

REACTIONS (3)
  - Rash maculo-papular [Recovering/Resolving]
  - Dry eye [Recovering/Resolving]
  - Chapped lips [Recovering/Resolving]
